FAERS Safety Report 7477703-8 (Version None)
Quarter: 2011Q2

REPORT INFORMATION
  Report Type: 
  Country: None (occurrence: None)
  Receive Date: 20110513
  Receipt Date: 20110425
  Transmission Date: 20111010
  Serious: Yes (Hospitalization)
  Sender: FDA-Public Use
  Company Number: US-BAYER-201038965NA

PATIENT
  Age: 35 Year
  Sex: Female
  Weight: 89.796 kg

DRUGS (1)
  1. YASMIN [Suspect]
     Indication: UTERINE LEIOMYOMA
     Dosage: UNK UNK, UNK
     Route: 048
     Dates: start: 20041001, end: 20041201

REACTIONS (4)
  - PULMONARY EMBOLISM [None]
  - STRESS [None]
  - PAIN IN EXTREMITY [None]
  - DEEP VEIN THROMBOSIS [None]
